FAERS Safety Report 16452372 (Version 1)
Quarter: 2019Q2

REPORT INFORMATION
  Report Type: Report from Study
  Country: US (occurrence: US)
  Receive Date: 20190619
  Receipt Date: 20190619
  Transmission Date: 20190711
  Serious: Yes (Hospitalization)
  Sender: FDA-Public Use
  Company Number: US-TAIHO ONCOLOGY  INC-EU-2019-02014

PATIENT
  Sex: Female

DRUGS (15)
  1. ZETIA [Concomitant]
     Active Substance: EZETIMIBE
     Dosage: NI
  2. MELATONIN [Concomitant]
     Active Substance: MELATONIN
     Dosage: NI
  3. DILAUDID [Concomitant]
     Active Substance: HYDROMORPHONE HYDROCHLORIDE
     Dosage: NI
  4. EZETIMIBE. [Concomitant]
     Active Substance: EZETIMIBE
     Dosage: NI
  5. NARCAN [Concomitant]
     Active Substance: NALOXONE HYDROCHLORIDE
     Dosage: NI
  6. FUROSEMIDE. [Concomitant]
     Active Substance: FUROSEMIDE
     Dosage: NI
  7. LONSURF [Suspect]
     Active Substance: TIPIRACIL HYDROCHLORIDE\TRIFLURIDINE
     Indication: COLON CANCER
     Dosage: CURRENT CYCLE UNKNOWN.
     Route: 048
     Dates: start: 20190517
  8. CALCIUM [Concomitant]
     Active Substance: CALCIUM
     Dosage: NI
  9. GABAPENTIN. [Concomitant]
     Active Substance: GABAPENTIN
     Dosage: NI
  10. FENTANYL. [Concomitant]
     Active Substance: FENTANYL
     Dosage: NI
  11. LEVOTHYROXINE. [Concomitant]
     Active Substance: LEVOTHYROXINE
     Dosage: NI
  12. IRON [Concomitant]
     Active Substance: IRON
     Dosage: NI
  13. FLUOXETINE [Concomitant]
     Active Substance: FLUOXETINE HYDROCHLORIDE
     Dosage: NI
  14. METFORMIN [Concomitant]
     Active Substance: METFORMIN HYDROCHLORIDE
     Dosage: NI
  15. MELOXICAM. [Concomitant]
     Active Substance: MELOXICAM
     Dosage: NI

REACTIONS (1)
  - Dehydration [Recovered/Resolved]

NARRATIVE: CASE EVENT DATE: 2019
